FAERS Safety Report 6523459-2 (Version None)
Quarter: 2009Q4

REPORT INFORMATION
  Report Type: 
  Country: None (occurrence: None)
  Receive Date: 20091222
  Receipt Date: 20091209
  Transmission Date: 20100525
  Serious: Yes (Other)
  Sender: FDA-Public Use
  Company Number: 002808

PATIENT
  Age: 74 Year
  Sex: Female

DRUGS (5)
  1. ROTIGOTINE (ROTIGOTINE) [Suspect]
     Indication: PARKINSON'S DISEASE
     Dosage: 16 MG TRANSDERMAL
     Route: 062
     Dates: start: 20071001
  2. AMANTADINE HCL [Concomitant]
  3. FUROSEMIDE [Concomitant]
  4. MADOPAR [Concomitant]
  5. TRIMETHOPRIM [Concomitant]

REACTIONS (1)
  - NEPHROTIC SYNDROME [None]
